FAERS Safety Report 9686640 (Version 3)
Quarter: 2013Q4

REPORT INFORMATION
  Report Type: Spontaneous
  Country: CL (occurrence: CL)
  Receive Date: 20131113
  Receipt Date: 20131211
  Transmission Date: 20140711
  Serious: Yes (Life-Threatening, Hospitalization)
  Sender: FDA-Public Use
  Company Number: CL-ROCHE-1301196

PATIENT
  Age: 74 Year
  Sex: Female

DRUGS (1)
  1. ACTEMRA [Suspect]
     Indication: ARTHRITIS
     Route: 065
     Dates: start: 201301, end: 201309

REACTIONS (1)
  - Cerebral haemorrhage [Recovered/Resolved]
